FAERS Safety Report 6124864-9 (Version None)
Quarter: 2009Q1

REPORT INFORMATION
  Report Type: 
  Country: None (occurrence: None)
  Receive Date: 20090319
  Receipt Date: 20090311
  Transmission Date: 20090719
  Serious: Yes (Hospitalization)
  Sender: FDA-Public Use
  Company Number: JP-ABBOTT-09P-087-0560765-00

PATIENT
  Age: 39 Year
  Sex: Male

DRUGS (11)
  1. NORVIR [Suspect]
     Indication: HIV INFECTION
     Dosage: 100MG DAILY
     Route: 048
     Dates: start: 20040728, end: 20050424
  2. EFAVIRENZ [Suspect]
     Indication: HIV INFECTION
     Dosage: 600MG DAILY
     Route: 048
     Dates: start: 20050425
  3. LAMIVUDINE [Suspect]
     Indication: HIV INFECTION
     Dosage: 300MG DAILY
     Route: 048
     Dates: start: 20050425, end: 20050523
  4. LAMIVUDINE [Suspect]
     Route: 048
     Dates: start: 19971229, end: 20050424
  5. STAVUDINE [Suspect]
     Indication: HIV INFECTION
     Route: 048
     Dates: start: 19981221, end: 20050424
  6. ATAZANAVIR SULFATE [Suspect]
     Indication: HIV INFECTION
     Dosage: 400MG DAILY
     Route: 048
     Dates: start: 20040103, end: 20040727
  7. ATAZANAVIR SULFATE [Suspect]
     Dosage: 300MG DAILY
     Route: 048
     Dates: start: 20040728, end: 20050424
  8. AMMONIUM GLYCYRRHIZINATE [Concomitant]
     Indication: DRUG USE FOR UNKNOWN INDICATION
     Dates: start: 20050401, end: 20050615
  9. FACTOR VIII [Concomitant]
     Indication: DRUG USE FOR UNKNOWN INDICATION
     Dates: start: 20050401, end: 20050411
  10. OCTOCOG ALFA [Concomitant]
     Indication: DRUG USE FOR UNKNOWN INDICATION
     Dates: start: 20050412
  11. TENOFOVIR DISOPROXIL FUMARATE [Concomitant]
     Indication: DRUG USE FOR UNKNOWN INDICATION
     Dates: start: 20050425, end: 20050523

REACTIONS (1)
  - HEPATIC CIRRHOSIS [None]
